FAERS Safety Report 20216814 (Version 1)
Quarter: 2021Q4

REPORT INFORMATION
  Report Type: Spontaneous
  Country: US (occurrence: None)
  Receive Date: 20211222
  Receipt Date: 20211222
  Transmission Date: 20220303
  Serious: Yes (Disabling)
  Sender: FDA-Public Use
  Company Number: None

PATIENT
  Age: 82 Year
  Sex: Female
  Weight: 63 kg

DRUGS (1)
  1. JANUVIA [Suspect]
     Active Substance: SITAGLIPTIN PHOSPHATE
     Indication: Diabetes mellitus
     Dosage: OTHER QUANTITY : 1 CAPSULE(S);?

REACTIONS (5)
  - Arthralgia [None]
  - Musculoskeletal pain [None]
  - Muscle spasms [None]
  - Gait inability [None]
  - Disability [None]

NARRATIVE: CASE EVENT DATE: 20211216
